FAERS Safety Report 9487025 (Version 4)
Quarter: 2013Q4

REPORT INFORMATION
  Report Type: Spontaneous
  Country: GB (occurrence: GB)
  Receive Date: 20130829
  Receipt Date: 20131031
  Transmission Date: 20140711
  Serious: Yes (Hospitalization, Other)
  Sender: FDA-Public Use
  Company Number: GB-PERRIGO-13GB008480

PATIENT
  Age: 47 Year
  Sex: Female
  Weight: 64 kg

DRUGS (1)
  1. EXTRA POWER PAIN RELIEVER 12063/0009 [Suspect]
     Indication: HEADACHE
     Dosage: 2 DF, SINGLE
     Route: 048
     Dates: start: 20130325

REACTIONS (16)
  - Hypersensitivity [Recovered/Resolved]
  - Speech disorder [Recovered/Resolved]
  - Dyspnoea [Recovered/Resolved]
  - Rash papular [Recovered/Resolved]
  - Product label confusion [Recovered/Resolved]
  - Activities of daily living impaired [Recovered/Resolved]
  - Emotional distress [Recovered/Resolved]
  - Malaise [Recovered/Resolved]
  - Swelling face [Recovered/Resolved]
  - Oedema mouth [Recovered/Resolved]
  - Rash [Recovered/Resolved]
  - Urticaria [Recovered/Resolved]
  - Rash macular [Recovered/Resolved]
  - Lip swelling [Recovered/Resolved]
  - Paraesthesia oral [Recovered/Resolved]
  - Chest discomfort [Recovered/Resolved]
